FAERS Safety Report 7175849-5 (Version None)
Quarter: 2010Q4

REPORT INFORMATION
  Report Type: 
  Country: None (occurrence: None)
  Receive Date: 20101220
  Receipt Date: 20100415
  Transmission Date: 20110411
  Serious: No
  Sender: FDA-Public Use
  Company Number: US-AMGEN-TCS403619

PATIENT

DRUGS (3)
  1. ENBREL [Suspect]
     Indication: PSORIASIS
     Dosage: 50 MG, QWK
     Route: 058
     Dates: start: 20070901
  2. ROSUVASTATIN CALCIUM [Concomitant]
     Dosage: UNK UNK, UNK
     Dates: start: 20070901
  3. AMLODIPINE BESYLATE [Concomitant]
     Dosage: UNK UNK, UNK
     Dates: start: 20070901

REACTIONS (1)
  - BLOOD CREATININE INCREASED [None]
